FAERS Safety Report 7160030 (Version 2)
Quarter: 2013Q1

REPORT INFORMATION
  Report Type: Spontaneous
  Country: DK (occurrence: DK)
  Receive Date: 20091027
  Receipt Date: 20130226
  Transmission Date: 20140127
  Serious: Yes (Congenital Anomaly)
  Sender: FDA-Public Use
  Company Number: DK-ELI_LILLY_AND_COMPANY-DK200910006343

PATIENT
  Sex: 0

DRUGS (1)
  1. FONTEX [Suspect]
     Dosage: UNK, UNKNOWN
     Route: 064

REACTIONS (2)
  - Cardiac septal defect [Unknown]
  - Foetal exposure during pregnancy [Unknown]
